FAERS Safety Report 16821795 (Version 3)
Quarter: 2019Q4

REPORT INFORMATION
  Report Type: Spontaneous
  Country: CZ (occurrence: CZ)
  Receive Date: 20190918
  Receipt Date: 20191107
  Transmission Date: 20200122
  Serious: Yes (Other)
  Sender: FDA-Public Use
  Company Number: CZ-MYLANLABS-2019M1086181

PATIENT
  Age: 56 Year
  Sex: Female

DRUGS (6)
  1. LETROZOLE. [Concomitant]
     Active Substance: LETROZOLE
     Indication: METASTASES TO LUNG
     Dosage: 3 CYCLES
     Route: 065
  2. LETROZOLE. [Concomitant]
     Active Substance: LETROZOLE
     Indication: BREAST CANCER METASTATIC
     Dosage: UNK, CYCLE, IN COMBINED THERAPY
     Route: 065
  3. RIBOCICLIB. [Concomitant]
     Active Substance: RIBOCICLIB
     Indication: BREAST CANCER METASTATIC
     Dosage: UNK UNK, CYCLE
     Dates: start: 2018
  4. RIBOCICLIB. [Concomitant]
     Active Substance: RIBOCICLIB
     Indication: METASTASES TO LUNG
  5. CAPECITABINE. [Suspect]
     Active Substance: CAPECITABINE
     Indication: BREAST CANCER METASTATIC
     Dosage: UNK UNK, CYCLE
     Route: 065
     Dates: start: 2018, end: 2018
  6. CAPECITABINE. [Suspect]
     Active Substance: CAPECITABINE
     Indication: METASTASES TO LUNG

REACTIONS (6)
  - Palmar-plantar erythrodysaesthesia syndrome [Unknown]
  - Fatigue [Unknown]
  - Cognitive disorder [Recovering/Resolving]
  - Neutropenia [Unknown]
  - Leukopenia [Unknown]
  - Nausea [Recovered/Resolved]
